FAERS Safety Report 11025299 (Version 1)
Quarter: 2015Q2

REPORT INFORMATION
  Report Type: Spontaneous
  Country: JP (occurrence: JP)
  Receive Date: 20150414
  Receipt Date: 20150414
  Transmission Date: 20150821
  Serious: Yes (Death, Hospitalization, Other)
  Sender: FDA-Public Use
  Company Number: JP-TEVA-554596ISR

PATIENT
  Age: 41 Year
  Sex: Female

DRUGS (2)
  1. DOCETAXEL. [Suspect]
     Active Substance: DOCETAXEL
     Indication: UTERINE LEIOMYOSARCOMA
     Dosage: 75 MG/M2 ON DAY 8
     Route: 065
  2. GEMCITABINE [Suspect]
     Active Substance: GEMCITABINE\GEMCITABINE HYDROCHLORIDE
     Indication: UTERINE LEIOMYOSARCOMA
     Dosage: 900 MG/M2 OVER 90 MIN ON DAYS 1, 8
     Route: 042

REACTIONS (5)
  - Fat necrosis [Unknown]
  - Pulmonary toxicity [Recovering/Resolving]
  - Multi-organ failure [Fatal]
  - Burns third degree [Unknown]
  - Burns fourth degree [Unknown]
